FAERS Safety Report 11213270 (Version 1)
Quarter: 2015Q2

REPORT INFORMATION
  Report Type: Spontaneous
  Country: JP (occurrence: JP)
  Receive Date: 20150623
  Receipt Date: 20150623
  Transmission Date: 20150821
  Serious: Yes (Hospitalization)
  Sender: FDA-Public Use
  Company Number: JP-GLAXOSMITHKLINE-JP2015JPN077383

PATIENT
  Age: 66 Year
  Sex: Male
  Weight: 56 kg

DRUGS (4)
  1. MUCODYNE [Concomitant]
     Active Substance: CARBOCYSTEINE
     Indication: SINUSITIS
     Dosage: 1500 MG, 1D
  2. FLUTIDE DISKUS [Suspect]
     Active Substance: FLUTICASONE PROPIONATE
     Indication: ASTHMA
     Dosage: 200 ?G, BID
     Route: 055
     Dates: start: 2009
  3. SEREVENT DISKUS [Concomitant]
     Active Substance: SALMETEROL XINAFOATE
     Indication: ASTHMA
     Dosage: 50 ?G, BID
  4. MONTELUKAST [Concomitant]
     Active Substance: MONTELUKAST SODIUM
     Indication: SINUSITIS
     Dosage: 10 MG, 1D

REACTIONS (3)
  - Haemoptysis [Recovered/Resolved]
  - Productive cough [Recovered/Resolved]
  - Laryngeal granuloma [Recovered/Resolved]

NARRATIVE: CASE EVENT DATE: 201401
